FAERS Safety Report 8299300-7 (Version None)
Quarter: 2012Q2

REPORT INFORMATION
  Report Type: 
  Country: None (occurrence: None)
  Receive Date: 20120419
  Receipt Date: 20120412
  Transmission Date: 20120825
  Serious: No
  Sender: FDA-Public Use
  Company Number: JP-B.I. PHARMACEUTICALS,INC./RIDGEFIELD-2012-BP-06922NB

PATIENT
  Age: 82 Year
  Sex: Male

DRUGS (8)
  1. CANDESARTAN CILEXETIL [Concomitant]
     Indication: HYPERTENSION
     Dosage: 12 MG
     Route: 048
  2. RYSMON TG [Concomitant]
     Route: 065
  3. DETANTOL [Concomitant]
     Indication: HYPERTENSION
     Dosage: 1 MG
     Route: 048
  4. TRAZENTA [Suspect]
     Indication: DIABETES MELLITUS
     Dosage: 5 MG
     Route: 048
     Dates: start: 20120208, end: 20120223
  5. LASIX [Concomitant]
     Indication: HYPERTENSION
     Dosage: 20 MG
     Route: 048
     Dates: start: 20100412
  6. BRONUCK [Concomitant]
     Route: 065
  7. HYALEIN [Concomitant]
     Route: 065
  8. ADALAT CC [Concomitant]
     Indication: HYPERTENSION
     Dosage: 40 MG
     Route: 048

REACTIONS (1)
  - EYELID OEDEMA [None]
